FAERS Safety Report 6302177-X (Version None)
Quarter: 2009Q3

REPORT INFORMATION
  Report Type: 
  Country: None (occurrence: None)
  Receive Date: 20090810
  Receipt Date: 20070801
  Transmission Date: 20100115
  Serious: Yes (Hospitalization, Other)
  Sender: FDA-Public Use
  Company Number: US-ASTRAZENECA-2007UW25295

PATIENT
  Age: 18847 Day
  Sex: Female
  Weight: 86.2 kg

DRUGS (21)
  1. SEROQUEL [Suspect]
     Indication: PSYCHOTIC DISORDER
     Route: 048
     Dates: start: 19980101, end: 20020101
  2. SEROQUEL [Suspect]
     Indication: SCHIZOPHRENIA, PARANOID TYPE
     Route: 048
     Dates: start: 19980101, end: 20020101
  3. SEROQUEL [Suspect]
     Indication: INSOMNIA
     Route: 048
     Dates: start: 19980101, end: 20020101
  4. SEROQUEL [Suspect]
     Route: 048
     Dates: start: 20040123, end: 20060501
  5. SEROQUEL [Suspect]
     Route: 048
     Dates: start: 20040123, end: 20060501
  6. SEROQUEL [Suspect]
     Route: 048
     Dates: start: 20040123, end: 20060501
  7. SEROQUEL [Suspect]
     Dosage: 25-450 MG DAILY
     Route: 048
     Dates: start: 20040204
  8. SEROQUEL [Suspect]
     Dosage: 25-450 MG DAILY
     Route: 048
     Dates: start: 20040204
  9. SEROQUEL [Suspect]
     Dosage: 25-450 MG DAILY
     Route: 048
     Dates: start: 20040204
  10. RISPERDAL [Concomitant]
  11. LISINOPRIL [Concomitant]
     Dosage: 10-40 MG DAILY
     Dates: start: 20050421
  12. CATAPRES [Concomitant]
     Dosage: 0.2-0.6 MG DAILY
     Dates: start: 20040206
  13. GLIPIZIDE [Concomitant]
     Dosage: 5-10 MG DAILY
     Dates: start: 20051023
  14. METOPROLOL TARTRATE [Concomitant]
     Dates: start: 20051023
  15. GEODON [Concomitant]
     Dosage: 40-60 MG DAILY
     Dates: start: 20050526, end: 20050501
  16. TRILEPTAL [Concomitant]
     Dosage: 300-600 MG DAILY
     Dates: start: 20051111
  17. ATIVAN [Concomitant]
     Dosage: 1 MG AS REQUIRED
     Dates: start: 20050421
  18. OSCAL [Concomitant]
     Dosage: 500-1000 MG DAILY
     Dates: start: 20050421
  19. ASPIRIN [Concomitant]
     Dates: start: 20050514
  20. LOPRESSOR [Concomitant]
     Dates: start: 20050421
  21. ABILIFY [Concomitant]
     Dates: end: 20040204

REACTIONS (12)
  - BLOOD SODIUM DECREASED [None]
  - CHEST PAIN [None]
  - COLONOSCOPY [None]
  - CONVULSION [None]
  - DIABETES MELLITUS [None]
  - HEADACHE [None]
  - HYPERGLYCAEMIA [None]
  - HYPONATRAEMIA [None]
  - OBESITY [None]
  - SCHIZOPHRENIA [None]
  - SCHIZOPHRENIA, PARANOID TYPE [None]
  - SUICIDAL IDEATION [None]
